FAERS Safety Report 9838342 (Version 3)
Quarter: 2014Q2

REPORT INFORMATION
  Report Type: Spontaneous
  Country: US (occurrence: US)
  Receive Date: 20140123
  Receipt Date: 20140604
  Transmission Date: 20141212
  Serious: Yes (Death)
  Sender: FDA-Public Use
  Company Number: US-GLAXOSMITHKLINE-A1057076A

PATIENT
  Age: 83 Year
  Sex: Male

DRUGS (7)
  1. VOTRIENT [Suspect]
     Indication: PRODUCT USED FOR UNKNOWN INDICATION
     Dosage: 800MG PER DAY
     Route: 048
     Dates: start: 20131223
  2. LOSARTAN [Concomitant]
  3. TRAMADOL [Concomitant]
  4. PLAVIX [Concomitant]
  5. MEGESTROL [Concomitant]
  6. OXYCONTIN [Concomitant]
  7. OXYCODONE [Concomitant]

REACTIONS (1)
  - Death [Fatal]
